FAERS Safety Report 20788031 (Version 1)
Quarter: 2022Q2

REPORT INFORMATION
  Report Type: Report from Study
  Country: US (occurrence: US)
  Receive Date: 20220505
  Receipt Date: 20220505
  Transmission Date: 20220721
  Serious: Yes (Hospitalization, Other)
  Sender: FDA-Public Use
  Company Number: US-ABBVIE-22K-163-4378213-00

PATIENT
  Sex: Female

DRUGS (1)
  1. HUMIRA [Suspect]
     Active Substance: ADALIMUMAB
     Indication: Rheumatoid arthritis
     Route: 058

REACTIONS (12)
  - Sigmoidoscopy [Unknown]
  - Salpingo-oophorectomy bilateral [Unknown]
  - Ovarian adhesion [Unknown]
  - Cholecystitis acute [Unknown]
  - Hip arthroplasty [Unknown]
  - Gallbladder operation [Unknown]
  - Knee arthroplasty [Unknown]
  - Knee arthroplasty [Unknown]
  - Bacterial abdominal infection [Unknown]
  - Septic shock [Unknown]
  - Sepsis [Unknown]
  - Clostridium difficile infection [Unknown]

NARRATIVE: CASE EVENT DATE: 20000101
